FAERS Safety Report 17747051 (Version 3)
Quarter: 2020Q2

REPORT INFORMATION
  Report Type: Report from Study
  Country: CA (occurrence: CA)
  Receive Date: 20200505
  Receipt Date: 20200621
  Transmission Date: 20200714
  Serious: Yes (Other)
  Sender: FDA-Public Use
  Company Number: PHHY2017CA133035

PATIENT
  Age: 68 Year
  Sex: Female

DRUGS (3)
  1. SANDOSTATIN LAR DEPOT [Suspect]
     Active Substance: OCTREOTIDE ACETATE
     Indication: NEUROENDOCRINE TUMOUR
     Dosage: 30 MG, (EVERY 4 WEEKS)
     Route: 030
     Dates: start: 20190102
  2. SANDOSTATIN LAR DEPOT [Suspect]
     Active Substance: OCTREOTIDE ACETATE
     Indication: CARCINOID TUMOUR
     Dosage: 30 MG, QMO
     Route: 030
     Dates: start: 20170623
  3. SANDOSTATIN LAR DEPOT [Suspect]
     Active Substance: OCTREOTIDE ACETATE
     Dosage: 30 MG, (EVERY 4 WEEKS)
     Route: 030
     Dates: start: 20200430

REACTIONS (6)
  - Fatigue [Unknown]
  - Skin discolouration [Unknown]
  - Anxiety [Unknown]
  - Blood pressure systolic increased [Not Recovered/Not Resolved]
  - Insomnia [Unknown]
  - Needle issue [Unknown]

NARRATIVE: CASE EVENT DATE: 20170904
